FAERS Safety Report 25973301 (Version 1)
Quarter: 2025Q4

REPORT INFORMATION
  Report Type: Spontaneous
  Country: EU (occurrence: EU)
  Receive Date: 20251029
  Receipt Date: 20251029
  Transmission Date: 20260118
  Serious: Yes (Life-Threatening, Other)
  Sender: Kenvue
  Company Number: None

PATIENT

DRUGS (7)
  1. LOPERAMIDE HYDROCHLORIDE [Suspect]
     Active Substance: LOPERAMIDE HYDROCHLORIDE
     Indication: Diarrhoea
     Dosage: 2 MILLIGRAM
     Route: 048
     Dates: end: 20250925
  2. CARBOPLATIN [Suspect]
     Active Substance: CARBOPLATIN
     Indication: Endometrial cancer
     Dosage: 2 WEEKS/36 TREATMENTS
     Route: 042
     Dates: start: 20250801, end: 20250919
  3. PACLITAXEL [Suspect]
     Active Substance: PACLITAXEL
     Indication: Endometrial cancer
     Dosage: 2 WEEKS/36 TREATMENTS
     Route: 042
     Dates: start: 20250801, end: 20250919
  4. DOSTARLIMAB [Suspect]
     Active Substance: DOSTARLIMAB
     Indication: Endometrial cancer
     Dosage: 2 WEEKS/36 TREATMENTS
     Route: 042
     Dates: start: 20250801, end: 20250915
  5. LATANOPROST\TIMOLOL MALEATE [Suspect]
     Active Substance: LATANOPROST\TIMOLOL MALEATE
     Indication: Glaucoma
     Dosage: 2 [DRP] (DROP (1/12 MILLILITRE)) , ONCE A DAY
     Dates: end: 20250925
  6. METOPIMAZINE [Suspect]
     Active Substance: METOPIMAZINE
     Indication: Nausea
     Dosage: 7.5 MILLIGRAM
     Route: 048
     Dates: end: 20250925
  7. RACECADOTRIL [Suspect]
     Active Substance: RACECADOTRIL
     Indication: Diarrhoea
     Route: 048
     Dates: end: 20250925

REACTIONS (1)
  - Ischaemic stroke [Recovered/Resolved]

NARRATIVE: CASE EVENT DATE: 20250925
